FAERS Safety Report 13371244 (Version 5)
Quarter: 2017Q3

REPORT INFORMATION
  Report Type: Report from Study
  Country: US (occurrence: US)
  Receive Date: 20170324
  Receipt Date: 20170804
  Transmission Date: 20171127
  Serious: Yes (Death, Hospitalization)
  Sender: FDA-Public Use
  Company Number: US-ACTELION-A-NJ2017-151391

PATIENT
  Age: 53 Year
  Sex: Female
  Weight: 63.49 kg

DRUGS (2)
  1. OPSUMIT [Suspect]
     Active Substance: MACITENTAN
     Indication: PORTOPULMONARY HYPERTENSION
     Dosage: 10 MG, QD
     Route: 048
     Dates: start: 201406
  2. ADCIRCA [Concomitant]
     Active Substance: TADALAFIL
     Dosage: 40 MG, QD

REACTIONS (12)
  - Respiratory failure [Fatal]
  - Condition aggravated [Fatal]
  - Hepatic failure [Fatal]
  - Pulmonary arterial hypertension [Fatal]
  - Pneumonia [Unknown]
  - Atrial septal defect [Unknown]
  - Cholecystitis [Unknown]
  - Cholecystectomy [Not Recovered/Not Resolved]
  - Right ventricular failure [Fatal]
  - Hypoxia [Fatal]
  - Pulmonary embolism [Fatal]
  - Cerebrovascular accident [Unknown]

NARRATIVE: CASE EVENT DATE: 20170611
